FAERS Safety Report 12846237 (Version 2)
Quarter: 2016Q4

REPORT INFORMATION
  Report Type: Spontaneous
  Country: RO (occurrence: RO)
  Receive Date: 20161014
  Receipt Date: 20161018
  Transmission Date: 20170207
  Serious: Yes (Hospitalization)
  Sender: FDA-Public Use
  Company Number: RO-AMGEN-ROUSP2016116778

PATIENT
  Age: 54 Year
  Sex: Female

DRUGS (2)
  1. ENBREL [Suspect]
     Active Substance: ETANERCEPT
     Indication: PSORIASIS
     Dosage: 50 MG, WEEKLY
     Route: 058
     Dates: start: 2016
  2. SEDATIF PC [Concomitant]
     Active Substance: VIBURNUM OPULUS BARK
     Indication: ANXIETY
     Dosage: UNK

REACTIONS (7)
  - Burning sensation [Unknown]
  - Peripheral venous disease [Unknown]
  - Dermatitis [Recovering/Resolving]
  - Condition aggravated [Recovering/Resolving]
  - Pain [Unknown]
  - Product quality issue [Recovered/Resolved]
  - Injection site injury [Recovered/Resolved]

NARRATIVE: CASE EVENT DATE: 2016
